FAERS Safety Report 10084755 (Version 1)
Quarter: 2014Q2

REPORT INFORMATION
  Report Type: Spontaneous
  Country: PK (occurrence: PK)
  Receive Date: 20140417
  Receipt Date: 20140417
  Transmission Date: 20141212
  Serious: Yes (Life-Threatening)
  Sender: FDA-Public Use
  Company Number: PK-GLAXOSMITHKLINE-B0986813A

PATIENT
  Sex: Male

DRUGS (4)
  1. FLIXONASE [Suspect]
     Indication: NASAL CONGESTION
     Dosage: 2SPR PER DAY
     Route: 045
  2. CECLOR [Concomitant]
  3. VENTOLIN [Concomitant]
  4. FLIXONASE [Concomitant]
     Indication: DYSPNOEA

REACTIONS (1)
  - Haemoptysis [Recovered/Resolved]
